FAERS Safety Report 4596656-3 (Version None)
Quarter: 2005Q1

REPORT INFORMATION
  Report Type: 
  Country: None (occurrence: None)
  Receive Date: 20050228
  Receipt Date: 20050222
  Transmission Date: 20050727
  Serious: Yes (Hospitalization, Other)
  Sender: FDA-Public Use
  Company Number: HQWYE249629JUL03

PATIENT
  Age: 69 Year
  Sex: Female
  Weight: 64.92 kg

DRUGS (1)
  1. MYLOTARG [Suspect]
     Indication: ACUTE MYELOID LEUKAEMIA
     Dosage: 15 MG 1X PER 1 DAY, INTRAVENOUS
     Route: 042
     Dates: start: 20030714, end: 20030714

REACTIONS (24)
  - ABDOMINAL DISTENSION [None]
  - ANAEMIA [None]
  - ANAPHYLACTIC REACTION [None]
  - BILIARY NEOPLASM [None]
  - BLOOD BLISTER [None]
  - BLOOD CREATINE INCREASED [None]
  - BLOOD UREA INCREASED [None]
  - CHILLS [None]
  - DEHYDRATION [None]
  - ECCHYMOSIS [None]
  - FEBRILE NEUTROPENIA [None]
  - GASTROINTESTINAL HAEMORRHAGE [None]
  - HAEMOGLOBIN DECREASED [None]
  - HEADACHE [None]
  - HEPATIC STEATOSIS [None]
  - HEPATOTOXICITY [None]
  - INFECTION [None]
  - INFUSION RELATED REACTION [None]
  - PAIN [None]
  - PANCYTOPENIA [None]
  - PLATELET COUNT DECREASED [None]
  - RENAL CYST [None]
  - SPLENOMEGALY [None]
  - WEIGHT INCREASED [None]
